FAERS Safety Report 11438651 (Version 1)
Quarter: 2015Q3

REPORT INFORMATION
  Report Type: Spontaneous
  Country: US (occurrence: None)
  Receive Date: 20150828
  Receipt Date: 20150828
  Transmission Date: 20151125
  Serious: Yes (Hospitalization)
  Sender: FDA-Public Use
  Company Number: US-ZYDUS-008847

PATIENT
  Age: 42 Year
  Sex: Female
  Weight: 73 kg

DRUGS (3)
  1. WARFARIN (WARFARIN) [Concomitant]
     Active Substance: WARFARIN
  2. OXYCODONE HCL [Suspect]
     Active Substance: OXYCODONE HYDROCHLORIDE
     Indication: BREAKTHROUGH PAIN
  3. METHADONE [Concomitant]
     Active Substance: METHADONE HYDROCHLORIDE

REACTIONS (5)
  - Mental status changes [None]
  - Gaze palsy [None]
  - Catatonia [None]
  - Toxicity to various agents [None]
  - Lethargy [None]
